FAERS Safety Report 6677651-7 (Version None)
Quarter: 2010Q2

REPORT INFORMATION
  Report Type: 
  Country: None (occurrence: None)
  Receive Date: 20100412
  Receipt Date: 20100310
  Transmission Date: 20101027
  Serious: No
  Sender: FDA-Public Use
  Company Number: US-ALEXION-A201000273

PATIENT
  Sex: Male

DRUGS (4)
  1. SOLIRIS [Suspect]
     Indication: PAROXYSMAL NOCTURNAL HAEMOGLOBINURIA
     Dosage: 600 MG, QW X4
     Route: 042
     Dates: start: 20090701
  2. SOLIRIS [Suspect]
     Dosage: 900 MG, Q2W
     Route: 042
     Dates: start: 20090729
  3. AVODART [Concomitant]
     Dosage: 1 TAB, QD
     Route: 048
  4. LISINOPRIL [Concomitant]
     Dosage: 5 MG, QD
     Route: 048

REACTIONS (7)
  - BONE PAIN [None]
  - COUGH [None]
  - FATIGUE [None]
  - INCREASED UPPER AIRWAY SECRETION [None]
  - NASOPHARYNGITIS [None]
  - PYREXIA [None]
  - SINUS CONGESTION [None]
